FAERS Safety Report 8863865 (Version 1)
Quarter: 2012Q4

REPORT INFORMATION
  Report Type: 
  Country: US (occurrence: US)
  Receive Date: 20121024
  Receipt Date: 20121024
  Transmission Date: 20130627
  Serious: No
  Sender: FDA-Public Use
  Company Number: US-AMGEN-USASP2011064375

PATIENT
  Sex: Female
  Weight: 57.14 kg

DRUGS (13)
  1. ENBREL [Suspect]
     Indication: PRODUCT USED FOR UNKNOWN INDICATION
     Dosage: 50 mg, qwk
     Route: 058
  2. VYVANSE [Concomitant]
     Dosage: 30 mg, UNK
  3. CYMBALTA [Concomitant]
     Dosage: 20 mg, UNK
  4. CLONAZEPAM [Concomitant]
     Dosage: 1 mg, UNK
  5. GABAPENTIN AAA [Concomitant]
     Dosage: 400 mg, UNK
  6. METHOTREXATE [Concomitant]
     Dosage: 1 g, UNK
  7. MULTIVITAMINS [Concomitant]
  8. FISH OIL [Concomitant]
  9. CALCIUM [Concomitant]
  10. VITAMIN D3 [Concomitant]
     Dosage: 5000 IU, UNK
  11. ASPIRIN BUFFERED [Concomitant]
     Dosage: 325 mg, UNK
  12. FOLIC ACID [Concomitant]
     Dosage: 20 mg, UNK
  13. INTRAVENOUS DEXTROSE [Concomitant]
     Indication: OSTEOPENIA

REACTIONS (2)
  - Injection site pain [Unknown]
  - Injection site swelling [Unknown]
